FAERS Safety Report 21596171 (Version 1)
Quarter: 2022Q4

REPORT INFORMATION
  Report Type: Spontaneous
  Country: US (occurrence: US)
  Receive Date: 20221115
  Receipt Date: 20221115
  Transmission Date: 20230113
  Serious: Yes (Other)
  Sender: FDA-Public Use
  Company Number: US-MYLANLABS-2022M1121570

PATIENT
  Sex: Female
  Weight: 73.48 kg

DRUGS (1)
  1. SEMGLEE (INSULIN GLARGINE-YFGN) [Suspect]
     Active Substance: INSULIN GLARGINE-YFGN
     Indication: Type 2 diabetes mellitus
     Dosage: UNK UNK, QD (AT THE SAME TIME EVERY DAY)
     Route: 058

REACTIONS (4)
  - Lipodystrophy acquired [Unknown]
  - Lipohypertrophy [Unknown]
  - Inappropriate schedule of product administration [Unknown]
  - Device issue [Unknown]
